FAERS Safety Report 9338573 (Version 1)
Quarter: 2013Q2

REPORT INFORMATION
  Report Type: Report from Study
  Country: FR (occurrence: FR)
  Receive Date: 20130610
  Receipt Date: 20130610
  Transmission Date: 20140414
  Serious: Yes (Hospitalization)
  Sender: FDA-Public Use
  Company Number: FR-ROCHE-1231136

PATIENT
  Age: 48 Year
  Sex: Female

DRUGS (10)
  1. BEVACIZUMAB [Suspect]
     Indication: BRAIN NEOPLASM MALIGNANT
     Route: 065
  2. CORTICOIDS NOS [Suspect]
     Indication: PRODUCT USED FOR UNKNOWN INDICATION
     Route: 065
  3. CALCIDOSE VITAMINE D [Concomitant]
     Dosage: CALCIUM 500 MG/CALCIFEROL 400 IUX 2/DAY
     Route: 048
     Dates: end: 201206
  4. VIMPAT [Concomitant]
     Route: 048
     Dates: end: 20130411
  5. KEPPRA [Concomitant]
     Route: 048
     Dates: end: 201302
  6. PRETERAX [Concomitant]
     Dosage: DOSE REPORTED AS 2,510,625 MG
     Route: 065
     Dates: end: 20130109
  7. DIFFU K [Concomitant]
     Route: 048
  8. ACTONEL [Concomitant]
     Route: 065
     Dates: end: 201206
  9. DAFALGAN [Concomitant]
     Route: 065
     Dates: end: 201206
  10. MEDROL [Concomitant]
     Route: 048
     Dates: end: 201206

REACTIONS (3)
  - Oedema peripheral [Not Recovered/Not Resolved]
  - Hypokalaemia [Recovered/Resolved]
  - Myocardial infarction [Recovering/Resolving]
